FAERS Safety Report 19995442 (Version 1)
Quarter: 2021Q4

REPORT INFORMATION
  Report Type: Spontaneous
  Country: US (occurrence: US)
  Receive Date: 20211025
  Receipt Date: 20211025
  Transmission Date: 20220303
  Serious: Yes (Death)
  Sender: FDA-Public Use
  Company Number: None

PATIENT
  Sex: Female

DRUGS (1)
  1. PIQRAY [Suspect]
     Active Substance: ALPELISIB
     Indication: Breast cancer female
     Dosage: ?          OTHER DOSE:200 + 50 MG;OTHER FREQUENCY:SEE B.6(PAGE2);
     Route: 048
     Dates: start: 20200403, end: 202107

REACTIONS (1)
  - Death [None]
